FAERS Safety Report 19667778 (Version 1)
Quarter: 2021Q3

REPORT INFORMATION
  Report Type: Other
  Country: CA (occurrence: CA)
  Receive Date: 20210806
  Receipt Date: 20210806
  Transmission Date: 20211014
  Serious: Yes (Hospitalization, Other)
  Sender: FDA-Public Use
  Company Number: CA-ROCHE-2749285

PATIENT
  Sex: Female

DRUGS (5)
  1. PROLIA [Concomitant]
     Active Substance: DENOSUMAB
  2. FAMPYRA [Concomitant]
     Active Substance: DALFAMPRIDINE
  3. DITROPAN [Concomitant]
     Active Substance: OXYBUTYNIN CHLORIDE
  4. BACLOFEN. [Concomitant]
     Active Substance: BACLOFEN
  5. OCREVUS [Suspect]
     Active Substance: OCRELIZUMAB
     Indication: PRIMARY PROGRESSIVE MULTIPLE SCLEROSIS
     Dosage: THEN 600 MG EVERY 6 MONTH
     Route: 042
     Dates: start: 20200817

REACTIONS (10)
  - Fall [Unknown]
  - Arthropathy [Not Recovered/Not Resolved]
  - Weight increased [Not Recovered/Not Resolved]
  - Hypotension [Recovering/Resolving]
  - Catheter site pain [Recovered/Resolved]
  - Muscle spasms [Not Recovered/Not Resolved]
  - Ligament rupture [Unknown]
  - Calculus bladder [Recovered/Resolved]
  - Bacterial infection [Recovered/Resolved]
  - Insomnia [Unknown]
